FAERS Safety Report 13830033 (Version 2)
Quarter: 2017Q4

REPORT INFORMATION
  Report Type: Spontaneous
  Country: FR (occurrence: FR)
  Receive Date: 20170803
  Receipt Date: 20171103
  Transmission Date: 20180320
  Serious: Yes (Death, Other)
  Sender: FDA-Public Use
  Company Number: FR-ASTELLAS-2007EU002031

PATIENT
  Age: 38 Year
  Sex: Female

DRUGS (14)
  1. PROGRAF [Suspect]
     Active Substance: TACROLIMUS\TACROLIMUS ANHYDROUS
     Indication: TRANSPLANT
     Dosage: UNK UNK, UNKNOWN FREQ.
     Route: 048
     Dates: start: 20051127
  2. PREDNISONE. [Concomitant]
     Active Substance: PREDNISONE
     Route: 065
  3. VALACICLOVIR [Concomitant]
     Active Substance: VALACYCLOVIR HYDROCHLORIDE
     Indication: HERPES SIMPLEX
     Dosage: UNK UNK, UNKNOWN FREQ.
     Route: 048
  4. ANTITHYMOCYTE IMMUNOGLOBULIN [Concomitant]
     Active Substance: THYMOCYTE IMMUNE GLOBULIN NOS
     Indication: TRANSPLANT
     Dosage: UNK UNK, UNKNOWN FREQ.
     Route: 065
  5. PROGRAF [Suspect]
     Active Substance: TACROLIMUS\TACROLIMUS ANHYDROUS
     Route: 065
  6. PROTOPIC [Suspect]
     Active Substance: TACROLIMUS
     Indication: TRANSPLANT REJECTION
     Dosage: UNK, UNKNOWN FREQ.
     Route: 061
  7. MYCOPHENOLATE MOFETIL. [Concomitant]
     Active Substance: MYCOPHENOLATE MOFETIL
     Route: 065
  8. PREDNISONE. [Concomitant]
     Active Substance: PREDNISONE
     Indication: TRANSPLANT
     Dosage: UNK UNK, UNKNOWN FREQ.
     Route: 065
     Dates: start: 20051127
  9. SIROLIMUS. [Concomitant]
     Active Substance: SIROLIMUS
     Indication: TRANSPLANT
     Dosage: UNK UNK, UNKNOWN FREQ.
     Route: 065
  10. SIROLIMUS. [Concomitant]
     Active Substance: SIROLIMUS
     Dosage: UNK UNK, UNKNOWN FREQ.
     Route: 065
  11. MYCOPHENOLATE MOFETIL. [Concomitant]
     Active Substance: MYCOPHENOLATE MOFETIL
     Indication: TRANSPLANT
     Dosage: UNK UNK, UNKNOWN FREQ.
     Route: 065
     Dates: start: 20051127
  12. MYCOPHENOLATE MOFETIL. [Concomitant]
     Active Substance: MYCOPHENOLATE MOFETIL
     Route: 065
  13. CLOBETASOL [Concomitant]
     Active Substance: CLOBETASOL
     Indication: TRANSPLANT REJECTION
     Dosage: UNK UNK, UNKNOWN FREQ.
     Route: 061
  14. ACYCLOVIR                          /00587301/ [Concomitant]
     Active Substance: ACYCLOVIR
     Indication: HERPES SIMPLEX
     Dosage: UNK UNK, UNKNOWN FREQ.
     Route: 061

REACTIONS (19)
  - Lung carcinoma cell type unspecified recurrent [Fatal]
  - Dyskinesia [Unknown]
  - Vasculitis [Unknown]
  - Lip operation [Unknown]
  - Loss of personal independence in daily activities [Unknown]
  - Dysarthria [Unknown]
  - Arterial thrombosis [Unknown]
  - Transplant rejection [Recovered/Resolved]
  - Off label use [Unknown]
  - Thrombosis [Unknown]
  - Renal failure [Recovered/Resolved]
  - Thrombotic microangiopathy [Recovered/Resolved]
  - Small cell lung cancer [Fatal]
  - Transplant rejection [Recovering/Resolving]
  - Graft loss [Unknown]
  - Donor specific antibody present [Unknown]
  - Epidermal necrosis [Unknown]
  - Deformity [Unknown]
  - Transplant rejection [Unknown]

NARRATIVE: CASE EVENT DATE: 201403
